FAERS Safety Report 25279735 (Version 1)
Quarter: 2025Q2

REPORT INFORMATION
  Report Type: Spontaneous
  Country: ES (occurrence: ES)
  Receive Date: 20250507
  Receipt Date: 20250507
  Transmission Date: 20250716
  Serious: Yes (Other)
  Sender: BOEHRINGER INGELHEIM
  Company Number: ES-BoehringerIngelheim-2025-BI-026278

PATIENT
  Age: 49 Year
  Sex: Male

DRUGS (1)
  1. NINTEDANIB [Suspect]
     Active Substance: NINTEDANIB
     Indication: Idiopathic pulmonary fibrosis

REACTIONS (4)
  - Idiopathic pulmonary fibrosis [Unknown]
  - Acute respiratory distress syndrome [Unknown]
  - Respiratory tract infection viral [Unknown]
  - COVID-19 [Unknown]

NARRATIVE: CASE EVENT DATE: 20160101
